FAERS Safety Report 19160056 (Version 2)
Quarter: 2021Q2

REPORT INFORMATION
  Report Type: Spontaneous
  Country: BR (occurrence: BR)
  Receive Date: 20210421
  Receipt Date: 20210422
  Transmission Date: 20210717
  Serious: Yes (Other)
  Sender: FDA-Public Use
  Company Number: BR-ASTRAZENECA-2021A316367

PATIENT
  Sex: Female

DRUGS (2)
  1. TAMOXIFEN [Suspect]
     Active Substance: TAMOXIFEN
     Indication: BREAST CANCER
     Route: 048
  2. FASLODEX [Suspect]
     Active Substance: FULVESTRANT
     Indication: BREAST CANCER
     Dosage: 250.0MG UNKNOWN
     Route: 030
     Dates: start: 2013

REACTIONS (2)
  - Breast cancer metastatic [Not Recovered/Not Resolved]
  - Malignant pleural effusion [Not Recovered/Not Resolved]

NARRATIVE: CASE EVENT DATE: 201305
